FAERS Safety Report 10643263 (Version 1)
Quarter: 2014Q4

REPORT INFORMATION
  Report Type: Spontaneous
  Country: US (occurrence: None)
  Receive Date: 20141209
  Receipt Date: 20141209
  Transmission Date: 20150529
  Serious: Yes (Hospitalization)
  Sender: FDA-Public Use
  Company Number: None

PATIENT
  Age: 42 Year
  Sex: Female

DRUGS (1)
  1. BENLYSTA [Suspect]
     Active Substance: BELIMUMAB
     Indication: SYSTEMIC LUPUS ERYTHEMATOSUS
     Dosage: EVERY TWO WEEKS
     Route: 042
     Dates: start: 20141117, end: 20141117

REACTIONS (3)
  - Hypersensitivity [None]
  - Joint swelling [None]
  - Chest pain [None]

NARRATIVE: CASE EVENT DATE: 20141117
